FAERS Safety Report 7402307-2 (Version None)
Quarter: 2011Q2

REPORT INFORMATION
  Report Type: 
  Country: None (occurrence: None)
  Receive Date: 20110408
  Receipt Date: 20110330
  Transmission Date: 20111010
  Serious: Yes (Other)
  Sender: FDA-Public Use
  Company Number: US-US-EMD SERONO, INC.-7051343

PATIENT
  Sex: Male

DRUGS (2)
  1. HEAVY METAL DETOX PILL [Concomitant]
  2. REBIF [Suspect]
     Indication: MULTIPLE SCLEROSIS
     Route: 058
     Dates: start: 20110311

REACTIONS (5)
  - SUICIDAL IDEATION [None]
  - FATIGUE [None]
  - DEPRESSED MOOD [None]
  - BAND SENSATION [None]
  - INFLUENZA LIKE ILLNESS [None]
